FAERS Safety Report 12460875 (Version 1)
Quarter: 2016Q2

REPORT INFORMATION
  Report Type: Spontaneous
  Country: IN (occurrence: IN)
  Receive Date: 20160613
  Receipt Date: 20160613
  Transmission Date: 20160815
  Serious: Yes (Hospitalization, Other)
  Sender: FDA-Public Use
  Company Number: IN-INDIVIOR LIMITED-INDV-091239-2016

PATIENT
  Age: 53 Year
  Sex: Male

DRUGS (4)
  1. BUPRENORPHINE. [Suspect]
     Active Substance: BUPRENORPHINE
     Indication: SPINAL ANAESTHESIA
     Dosage: 90 ?G, UNK
     Route: 065
  2. BUPIVACAINE. [Suspect]
     Active Substance: BUPIVACAINE
     Indication: SPINAL ANAESTHESIA
     Dosage: 3.2 ML OF 0.5% HYPERBARIC BUPIVACAINE
     Route: 065
  3. TELMISARTAN. [Concomitant]
     Active Substance: TELMISARTAN
     Indication: HYPERTENSION
     Dosage: UNK
     Route: 065
  4. AMLODIPINE [Concomitant]
     Active Substance: AMLODIPINE BESYLATE
     Indication: HYPERTENSION
     Dosage: UNK
     Route: 065

REACTIONS (9)
  - Cerebral infarction [Unknown]
  - Off label use [Recovered/Resolved]
  - Cerebral artery occlusion [Recovered/Resolved]
  - Restlessness [Recovered/Resolved]
  - Aphasia [Recovered/Resolved]
  - Anxiety [Recovered/Resolved]
  - Procedural hypotension [Recovered/Resolved]
  - Pneumocephalus [Recovered/Resolved]
  - Monoparesis [Recovered/Resolved]
